FAERS Safety Report 4850987-8 (Version None)
Quarter: 2005Q4

REPORT INFORMATION
  Report Type: 
  Country: None (occurrence: None)
  Receive Date: 20051212
  Receipt Date: 20050414
  Transmission Date: 20060501
  Serious: Yes (Death, Hospitalization)
  Sender: FDA-Public Use
  Company Number: US-MERCK-0504USA02307

PATIENT
  Age: 39 Year
  Sex: Male
  Weight: 105 kg

DRUGS (6)
  1. VIOXX [Suspect]
     Route: 048
     Dates: end: 20031016
  2. VIOXX [Suspect]
     Route: 048
     Dates: start: 20031016
  3. PREDNISONE [Concomitant]
     Route: 065
     Dates: start: 20010601, end: 20010901
  4. METHOTREXATE [Concomitant]
     Route: 065
  5. FOLIC ACID [Concomitant]
     Route: 065
  6. SENOKOT [Concomitant]
     Route: 065

REACTIONS (25)
  - ANAEMIA [None]
  - BACTERAEMIA [None]
  - CARDIOPULMONARY FAILURE [None]
  - DEATH [None]
  - DEEP VEIN THROMBOSIS [None]
  - DEPRESSION [None]
  - DRUG HYPERSENSITIVITY [None]
  - EPISTAXIS [None]
  - HYPONATRAEMIA [None]
  - HYPOTENSION [None]
  - HYPOXIA [None]
  - LEUKOCYTOSIS [None]
  - MENISCUS LESION [None]
  - METABOLIC ACIDOSIS [None]
  - NEUTROPENIA [None]
  - ODYNOPHAGIA [None]
  - ORAL CANDIDIASIS [None]
  - RENAL FAILURE [None]
  - RHEUMATOID ARTHRITIS [None]
  - SEPTIC SHOCK [None]
  - STAPHYLOCOCCAL SEPSIS [None]
  - STOMATITIS [None]
  - THROMBOCYTOPENIA [None]
  - VENTRICULAR ARRHYTHMIA [None]
  - WOUND [None]
